FAERS Safety Report 10061209 (Version 1)
Quarter: 2014Q2

REPORT INFORMATION
  Report Type: Spontaneous
  Country: GB (occurrence: GB)
  Receive Date: 20140407
  Receipt Date: 20140407
  Transmission Date: 20141212
  Serious: Yes (Disabling, Other)
  Sender: FDA-Public Use
  Company Number: PHHY2014GB036833

PATIENT
  Age: 50 Year
  Sex: Female
  Weight: 99.15 kg

DRUGS (7)
  1. METFORMIN [Suspect]
     Indication: TYPE 2 DIABETES MELLITUS
     Dosage: 500 MG, BID
     Route: 048
     Dates: start: 20140121, end: 20140202
  2. HUMULIN I [Concomitant]
     Indication: DIABETES MELLITUS
     Dosage: 45 IU, UNK
     Route: 058
     Dates: start: 201401
  3. CO-CODAMOL [Concomitant]
     Indication: PAIN
     Route: 048
  4. RAMIPRIL [Concomitant]
     Indication: PROPHYLAXIS
     Dosage: 2.5 MG, QD
     Route: 048
  5. SIMVASTATIN [Concomitant]
     Indication: HYPERCHOLESTEROLAEMIA
     Dosage: 10 MG, QD
     Route: 048
  6. LANSOPRAZOLE [Concomitant]
     Indication: GASTRIC DISORDER
     Dosage: 30 MG, QD
     Route: 048
  7. GLICLAZIDE [Concomitant]
     Dosage: 80 MG, BID
     Route: 048

REACTIONS (5)
  - Weight increased [Recovering/Resolving]
  - Dyspnoea [Recovering/Resolving]
  - Wheezing [Recovering/Resolving]
  - Swelling [Recovering/Resolving]
  - Swelling face [Recovering/Resolving]
